FAERS Safety Report 24399925 (Version 3)
Quarter: 2024Q4

REPORT INFORMATION
  Report Type: Spontaneous
  Country: CA (occurrence: CA)
  Receive Date: 20241005
  Receipt Date: 20241115
  Transmission Date: 20250114
  Serious: No
  Sender: CELLTRION
  Company Number: CA-PFIZER INC-202400199626

PATIENT

DRUGS (4)
  1. INFLECTRA [Suspect]
     Active Substance: INFLIXIMAB-DYYB
     Indication: Crohn^s disease
     Dosage: 400 MG, 0, 2, WEEKS (HOSPITAL START)
     Route: 042
     Dates: start: 20240621, end: 20240704
  2. INFLECTRA [Suspect]
     Active Substance: INFLIXIMAB-DYYB
     Dosage: 500 MG, WEEK 6 THEN EVERY 8 WEEKS
     Route: 042
     Dates: start: 20240801
  3. INFLECTRA [Suspect]
     Active Substance: INFLIXIMAB-DYYB
     Dosage: 500 MG, EVERY 8 WEEKS
     Route: 042
     Dates: start: 20240801
  4. INFLECTRA [Suspect]
     Active Substance: INFLIXIMAB-DYYB
     Dosage: 500 MG, EVERY 8 WEEKS (AFTER 10 WEEKS AND 6 DAYS)
     Route: 042
     Dates: start: 20241016

REACTIONS (2)
  - Arthralgia [Not Recovered/Not Resolved]
  - Off label use [Unknown]

NARRATIVE: CASE EVENT DATE: 20240101
